FAERS Safety Report 18092259 (Version 1)
Quarter: 2020Q3

REPORT INFORMATION
  Report Type: Spontaneous
  Country: PL (occurrence: PL)
  Receive Date: 20200730
  Receipt Date: 20200730
  Transmission Date: 20201103
  Serious: Yes (Hospitalization, Other)
  Sender: FDA-Public Use
  Company Number: PL-ACCORD-193328

PATIENT
  Age: 15 Year
  Sex: Female

DRUGS (6)
  1. METHOTREXATE. [Suspect]
     Active Substance: METHOTREXATE
     Indication: B PRECURSOR TYPE ACUTE LEUKAEMIA
     Dosage: HIA TREATMENT COURSE APPLIED IN WEEKS 1?4
     Route: 065
  2. VINCRISTINE [Suspect]
     Active Substance: VINCRISTINE
     Indication: B PRECURSOR TYPE ACUTE LEUKAEMIA
     Dosage: HIA TREATMENT COURSE APPLIED IN WEEKS 1?4
     Route: 065
  3. CYTARABINE/CYTARABINE HYDROCHLORIDE/CYTARABINE OCFOSFATE [Suspect]
     Active Substance: CYTARABINE
     Indication: B PRECURSOR TYPE ACUTE LEUKAEMIA
     Dosage: HIA TREATMENT COURSE APPLIED IN WEEKS 1?4
     Route: 065
  4. METHOTREXATE. [Suspect]
     Active Substance: METHOTREXATE
     Indication: B PRECURSOR TYPE ACUTE LEUKAEMIA
     Dosage: HIA TREATMENT COURSE APPLIED IN WEEKS 1?4
     Route: 037
  5. PEGASPARGASE [Suspect]
     Active Substance: PEGASPARGASE
     Indication: B PRECURSOR TYPE ACUTE LEUKAEMIA
     Dosage: HIA TREATMENT COURSE APPLIED IN WEEKS 1?4
     Route: 065
  6. DEXAMETHASONE. [Suspect]
     Active Substance: DEXAMETHASONE
     Indication: B PRECURSOR TYPE ACUTE LEUKAEMIA
     Dosage: PART OF HIA TREATMENT COURSE
     Route: 065
     Dates: start: 201608

REACTIONS (2)
  - Bradycardia [Unknown]
  - Pancreatitis [Unknown]

NARRATIVE: CASE EVENT DATE: 2020
